FAERS Safety Report 8894017 (Version 1)
Quarter: 2012Q4

REPORT INFORMATION
  Report Type: 
  Country: US (occurrence: US)
  Receive Date: 20121107
  Receipt Date: 20121107
  Transmission Date: 20130627
  Serious: No
  Sender: FDA-Public Use
  Company Number: US-AMGEN-USASP2011060119

PATIENT
  Sex: Female

DRUGS (1)
  1. ENBREL [Suspect]
     Indication: RHEUMATOID ARTHRITIS
     Dosage: 50 mg, qwk
     Dates: start: 20110401, end: 201110

REACTIONS (6)
  - Blister [Unknown]
  - Night sweats [Unknown]
  - Skin exfoliation [Unknown]
  - Staphylococcal infection [Unknown]
  - Herpes zoster [Unknown]
  - Viral infection [Unknown]
